FAERS Safety Report 5494277-1 (Version None)
Quarter: 2007Q4

REPORT INFORMATION
  Report Type: 
  Country: None (occurrence: None)
  Receive Date: 20071012
  Receipt Date: 20070914
  Transmission Date: 20080405
  Serious: Yes (Other)
  Sender: FDA-Public Use
  Company Number: US-2007-027498

PATIENT
  Age: 40 Year
  Sex: Female
  Weight: 50 kg

DRUGS (2)
  1. MIRENA [Suspect]
     Indication: CONTRACEPTION
     Dosage: 20 UG/DAY, CONT, INTRA-UTERINE
     Route: 015
     Dates: start: 20060901
  2. YAZ [Suspect]
     Indication: ACNE CYSTIC
     Dosage: 1 TAB(S), 1X/DAY, ORAL
     Route: 048
     Dates: start: 20060901, end: 20070401

REACTIONS (1)
  - ALOPECIA [None]
